FAERS Safety Report 7802711-4 (Version None)
Quarter: 2011Q4

REPORT INFORMATION
  Report Type: 
  Country: None (occurrence: None)
  Receive Date: 20111007
  Receipt Date: 20110930
  Transmission Date: 20120403
  Serious: Yes (Other)
  Sender: FDA-Public Use
  Company Number: PHHY2010CA74797

PATIENT
  Sex: Female

DRUGS (1)
  1. ZOMETA [Suspect]
     Indication: BREAST CANCER
     Dosage: 4 MG, EVERY 6 MONTHS
     Route: 042
     Dates: start: 20101001

REACTIONS (4)
  - BLOOD PRESSURE INCREASED [None]
  - TOOTH INFECTION [None]
  - OROPHARYNGEAL PAIN [None]
  - DRY THROAT [None]
